FAERS Safety Report 15075873 (Version 1)
Quarter: 2018Q2

REPORT INFORMATION
  Report Type: Spontaneous
  Country: US (occurrence: US)
  Receive Date: 20180627
  Receipt Date: 20180627
  Transmission Date: 20180711
  Serious: No
  Sender: FDA-Public Use
  Company Number: US-SA-2018SA171684

PATIENT
  Age: 63 Year
  Sex: Female

DRUGS (9)
  1. ATORVASTATIN CALCIUM. [Concomitant]
     Active Substance: ATORVASTATIN CALCIUM
  2. BENICAR [Concomitant]
     Active Substance: OLMESARTAN MEDOXOMIL
  3. AUBAGIO [Suspect]
     Active Substance: TERIFLUNOMIDE
     Indication: MULTIPLE SCLEROSIS
     Dosage: 14 MG, QD
     Route: 048
     Dates: start: 201805
  4. MELOXICAM. [Concomitant]
     Active Substance: MELOXICAM
  5. TRAMADOL HCL [Concomitant]
     Active Substance: TRAMADOL HYDROCHLORIDE
  6. HUMALOG MIX [Concomitant]
     Active Substance: INSULIN LISPRO
     Dosage: 75-25 75-25/ML VIAL
  7. PROPYLTHIOURACIL. [Concomitant]
     Active Substance: PROPYLTHIOURACIL
  8. AMLODIPINE BESYLATE. [Concomitant]
     Active Substance: AMLODIPINE BESYLATE
  9. COLLAGEN [Concomitant]
     Active Substance: COLLAGEN
     Dosage: 125-740MG CAPSULE

REACTIONS (3)
  - Alopecia [Unknown]
  - Decreased interest [Unknown]
  - Depression [Unknown]

NARRATIVE: CASE EVENT DATE: 2018
